FAERS Safety Report 4616430-9 (Version None)
Quarter: 2005Q1

REPORT INFORMATION
  Report Type: 
  Country: None (occurrence: None)
  Receive Date: 20050318
  Receipt Date: 20050302
  Transmission Date: 20050727
  Serious: Yes (Death)
  Sender: FDA-Public Use
  Company Number: L04-USA-07403-33

PATIENT
  Age: 28 Year
  Sex: Male

DRUGS (8)
  1. CITALOPRAM  (CITALOPRAM) [Suspect]
  2. LITHIUM CARBONATE [Suspect]
  3. NORTRIPTYLINE HCL [Suspect]
  4. PAROXETINE HCL [Concomitant]
  5. VALSARTAN [Concomitant]
  6. HYDROCHLOROTHIAZIDE [Concomitant]
  7. GABAPENTIN [Concomitant]
  8. LEVOTHYROXINE [Concomitant]

REACTIONS (17)
  - ABDOMINAL PAIN [None]
  - ACIDOSIS [None]
  - BLOOD PRESSURE SYSTOLIC INCREASED [None]
  - BLOOD SODIUM DECREASED [None]
  - CARDIO-RESPIRATORY ARREST [None]
  - COMPLETED SUICIDE [None]
  - CONFUSIONAL STATE [None]
  - CONVULSION [None]
  - DIARRHOEA [None]
  - DRUG SCREEN POSITIVE [None]
  - GENERAL PHYSICAL HEALTH DETERIORATION [None]
  - HAEMODIALYSIS [None]
  - HYPOTENSION [None]
  - INTENTIONAL MISUSE [None]
  - MENTAL STATUS CHANGES [None]
  - OBSTRUCTIVE AIRWAYS DISORDER [None]
  - RENAL FAILURE [None]
